FAERS Safety Report 25746399 (Version 1)
Quarter: 2025Q3

REPORT INFORMATION
  Report Type: Report from Study
  Country: US (occurrence: US)
  Receive Date: 20250901
  Receipt Date: 20250901
  Transmission Date: 20251020
  Serious: Yes (Hospitalization)
  Sender: GRIFOLS
  Company Number: US-IGSA-BIG0037571

PATIENT
  Sex: Male

DRUGS (1)
  1. GAMUNEX-C [Suspect]
     Active Substance: HUMAN IMMUNOGLOBULIN G
     Indication: Immunodeficiency common variable
     Dosage: 20 GRAM, Q.4WK.
     Route: 042
     Dates: start: 202506

REACTIONS (4)
  - Pancreatitis [Recovered/Resolved]
  - Abdominal pain upper [Recovered/Resolved]
  - Feeding disorder [Recovered/Resolved]
  - Epigastric discomfort [Recovered/Resolved]
